FAERS Safety Report 7768055-4 (Version None)
Quarter: 2011Q3

REPORT INFORMATION
  Report Type: 
  Country: None (occurrence: None)
  Receive Date: 20110922
  Receipt Date: 20110910
  Transmission Date: 20111222
  Serious: Yes (Other)
  Sender: FDA-Public Use
  Company Number: US-PFIZER INC-2011087387

PATIENT
  Sex: Female
  Weight: 78.7 kg

DRUGS (11)
  1. LASIX [Concomitant]
     Dosage: UNK
     Route: 048
     Dates: start: 20110414
  2. FLUTICASONE [Concomitant]
     Indication: SEASONAL ALLERGY
     Dosage: NASAL SPRAY
     Route: 045
     Dates: start: 20110101
  3. CRIZOTINIB [Suspect]
     Dosage: UNK
  4. ATENOLOL [Concomitant]
     Dosage: UNK
     Route: 048
     Dates: start: 19960101
  5. CLARITIN [Concomitant]
     Dosage: UNK
     Route: 048
     Dates: start: 20110101
  6. ROBITUSSIN DM-P [Concomitant]
     Dosage: UNK
     Route: 048
     Dates: start: 20080101
  7. OXYGEN [Concomitant]
     Dosage: UNK
     Dates: start: 20110219
  8. CRIZOTINIB [Suspect]
     Indication: NON-SMALL CELL LUNG CANCER
     Dosage: 250 MG, 2X/DAY
     Route: 048
     Dates: start: 20110204
  9. CALCIUM CARBONATE [Concomitant]
     Dosage: UNK
     Route: 048
     Dates: start: 20010101
  10. GABAPENTIN [Concomitant]
     Dosage: UNK
     Route: 048
     Dates: start: 20090101
  11. CALCIUM [Concomitant]
     Dosage: UNK
     Route: 048
     Dates: start: 19690101

REACTIONS (1)
  - CATARACT [None]
